FAERS Safety Report 14182302 (Version 2)
Quarter: 2017Q4

REPORT INFORMATION
  Report Type: Spontaneous
  Country: CN (occurrence: CN)
  Receive Date: 20171113
  Receipt Date: 20171122
  Transmission Date: 20180321
  Serious: Yes (Hospitalization)
  Sender: FDA-Public Use
  Company Number: CN-ASTRAZENECA-2017SF13702

PATIENT
  Sex: Female

DRUGS (8)
  1. PULMICORT TURBUHALER [Suspect]
     Active Substance: BUDESONIDE
     Indication: COUGH
     Dosage: DOSE UNKNOWN
     Route: 055
  2. BRICANYL [Suspect]
     Active Substance: TERBUTALINE SULFATE
     Indication: COUGH
     Dosage: UNKNOWN
     Route: 055
  3. BRICANYL [Suspect]
     Active Substance: TERBUTALINE SULFATE
     Indication: PNEUMONIA
     Dosage: UNKNOWN
     Route: 055
  4. SINGULAIR [Concomitant]
     Active Substance: MONTELUKAST SODIUM
  5. PULMICORT TURBUHALER [Suspect]
     Active Substance: BUDESONIDE
     Indication: PNEUMONIA
     Dosage: DOSE UNKNOWN
     Route: 055
  6. ALBUTEROL. [Concomitant]
     Active Substance: ALBUTEROL
     Dates: start: 20171105
  7. IPRATROPIUM BROMIDE. [Concomitant]
     Active Substance: IPRATROPIUM BROMIDE
  8. PIDOTIMOD [Concomitant]
     Active Substance: PIDOTIMOD

REACTIONS (5)
  - Pneumonia [Unknown]
  - Off label use [Unknown]
  - Product use in unapproved indication [Unknown]
  - Pigmentation disorder [Unknown]
  - Rash macular [Unknown]
